FAERS Safety Report 5472722-5 (Version None)
Quarter: 2007Q4

REPORT INFORMATION
  Report Type: 
  Country: None (occurrence: None)
  Receive Date: 20071001
  Receipt Date: 20061003
  Transmission Date: 20080405
  Serious: No
  Sender: FDA-Public Use
  Company Number: US-ASTRAZENECA-2006UW19206

PATIENT
  Age: 58 Year
  Sex: Female
  Weight: 81.6 kg

DRUGS (8)
  1. ARIMIDEX [Suspect]
     Indication: PROPHYLAXIS
     Route: 048
  2. METHADONE HCL [Concomitant]
  3. SOMA [Concomitant]
  4. ZOLOFT [Concomitant]
  5. WELLBUTRIN [Concomitant]
  6. KLONOPIN [Concomitant]
  7. COUMADIN [Concomitant]
  8. RADIATION THERAPY [Concomitant]

REACTIONS (6)
  - BONE PAIN [None]
  - CONTUSION [None]
  - HOT FLUSH [None]
  - HYPERHIDROSIS [None]
  - IRRITABILITY [None]
  - SKIN IRRITATION [None]
